FAERS Safety Report 14949520 (Version 2)
Quarter: 2018Q2

REPORT INFORMATION
  Report Type: Report from Study
  Country: CA (occurrence: CA)
  Receive Date: 20180529
  Receipt Date: 20180607
  Transmission Date: 20180711
  Serious: Yes (Other)
  Sender: FDA-Public Use
  Company Number: PHHY2018CA009653

PATIENT
  Age: 74 Year
  Sex: Male

DRUGS (5)
  1. APO-LEVOCARB [Concomitant]
     Active Substance: CARBIDOPA\LEVODOPA
     Indication: PARKINSON^S DISEASE
     Route: 065
  2. KENALOG [Concomitant]
     Active Substance: TRIAMCINOLONE ACETONIDE
     Indication: PRODUCT USED FOR UNKNOWN INDICATION
     Route: 065
  3. VALSARTAN. [Suspect]
     Active Substance: VALSARTAN
     Indication: HYPERTENSION
     Dosage: UNK
     Route: 048
     Dates: start: 20130101
  4. RISEDRONATE [Concomitant]
     Active Substance: RISEDRONATE SODIUM
     Indication: PRODUCT USED FOR UNKNOWN INDICATION
     Route: 065
  5. BENADRYL [Concomitant]
     Active Substance: DIPHENHYDRAMINE HYDROCHLORIDE
     Indication: PRODUCT USED FOR UNKNOWN INDICATION
     Route: 065

REACTIONS (1)
  - Thrombosis [Unknown]

NARRATIVE: CASE EVENT DATE: 201805
